FAERS Safety Report 18501331 (Version 1)
Quarter: 2020Q4

REPORT INFORMATION
  Report Type: Spontaneous
  Country: US (occurrence: US)
  Receive Date: 20201113
  Receipt Date: 20201113
  Transmission Date: 20210114
  Serious: No
  Sender: FDA-Public Use
  Company Number: US-ASTRAZENECA-2020SF37278

PATIENT
  Sex: Female

DRUGS (6)
  1. VALIUM [Concomitant]
     Active Substance: DIAZEPAM
  2. VENTOLIN [Concomitant]
     Active Substance: ALBUTEROL SULFATE
  3. SYMBICORT [Suspect]
     Active Substance: BUDESONIDE\FORMOTEROL FUMARATE DIHYDRATE
     Dosage: 160/4.5MCG 2 PUFFS TWICE A DAY
     Route: 055
  4. PULMICORT FLEXHALER [Suspect]
     Active Substance: BUDESONIDE
     Indication: CHRONIC OBSTRUCTIVE PULMONARY DISEASE
     Dosage: 180MCG 2PUFFS TWICE A DAY
     Route: 055
  5. SPIRIVA [Concomitant]
     Active Substance: TIOTROPIUM BROMIDE MONOHYDRATE
  6. GABAPENTIN. [Concomitant]
     Active Substance: GABAPENTIN

REACTIONS (6)
  - Arthritis [Unknown]
  - Fibromyalgia [Unknown]
  - Productive cough [Unknown]
  - Respiratory distress [Unknown]
  - Device malfunction [Unknown]
  - Pain [Unknown]
